FAERS Safety Report 20850035 (Version 3)
Quarter: 2022Q3

REPORT INFORMATION
  Report Type: Spontaneous
  Country: US (occurrence: US)
  Receive Date: 20220519
  Receipt Date: 20220914
  Transmission Date: 20221026
  Serious: No
  Sender: FDA-Public Use
  Company Number: US-PFIZER INC-202200700517

PATIENT
  Age: 84 Year
  Sex: Female
  Weight: 63.5 kg

DRUGS (2)
  1. IBRANCE [Suspect]
     Active Substance: PALBOCICLIB
     Indication: Breast cancer female
     Dosage: 125 MG
     Dates: start: 202112
  2. IBRANCE [Suspect]
     Active Substance: PALBOCICLIB
     Dosage: 100 MG, CYCLIC (ONCE DAILY FOR 3 WEEKS AND OFF FOR ONE WEEK)
     Route: 048

REACTIONS (8)
  - Pruritus [Unknown]
  - Malaise [Not Recovered/Not Resolved]
  - Memory impairment [Not Recovered/Not Resolved]
  - Fatigue [Unknown]
  - Stomatitis [Recovered/Resolved]
  - Full blood count abnormal [Recovered/Resolved]
  - Dizziness [Unknown]
  - Eye disorder [Unknown]

NARRATIVE: CASE EVENT DATE: 20211201
